FAERS Safety Report 9999200 (Version 1)
Quarter: 2014Q1

REPORT INFORMATION
  Report Type: Report from Study
  Country: GB (occurrence: GB)
  Receive Date: 20140312
  Receipt Date: 20140312
  Transmission Date: 20141002
  Serious: Yes (Hospitalization)
  Sender: FDA-Public Use
  Company Number: GB-ACCORD-022298

PATIENT
  Age: 42 Year
  Sex: Female
  Weight: 62.7 kg

DRUGS (3)
  1. DOCETAXEL [Suspect]
     Indication: HER-2 POSITIVE BREAST CANCER
     Dosage: RECEIVED LAST DOSE ON 30-JAN-2014 PRIOR TO SERIOUS ADVERSE EVENT (SAE)
     Route: 042
     Dates: start: 20131219
  2. HERCEPTIN [Suspect]
     Indication: HER-2 POSITIVE BREAST CANCER
     Dosage: LAST RECEIVED ON 30-JAN-2014 BEFORE SERIOUS ADVERSE EVENT (SAE) 30/JAN/2014
     Route: 042
     Dates: start: 20131219
  3. PERTUZUMAB [Suspect]
     Indication: HER-2 POSITIVE BREAST CANCER
     Dosage: LOADING DOSE AND THEN 420 MG MAINTENANCE DOSE. LAST DOSE ON 30-JAN-2014 BEFORE SAE
     Route: 042
     Dates: start: 20131219

REACTIONS (2)
  - Lower respiratory tract infection [Unknown]
  - Infection [Not Recovered/Not Resolved]
